FAERS Safety Report 9510858 (Version 1)
Quarter: 2013Q3

REPORT INFORMATION
  Report Type: Spontaneous
  Country: US (occurrence: US)
  Receive Date: 20130910
  Receipt Date: 20130910
  Transmission Date: 20140515
  Serious: No
  Sender: FDA-Public Use
  Company Number: US-BIOGENIDEC-2013BI082820

PATIENT
  Age: 58 Year
  Sex: Female

DRUGS (1)
  1. TYSABRI [Suspect]
     Indication: MULTIPLE SCLEROSIS
     Route: 042
     Dates: start: 20111109

REACTIONS (22)
  - Memory impairment [Not Recovered/Not Resolved]
  - Frustration [Not Recovered/Not Resolved]
  - Hypoaesthesia [Not Recovered/Not Resolved]
  - Sensory disturbance [Not Recovered/Not Resolved]
  - Pain in extremity [Not Recovered/Not Resolved]
  - Coordination abnormal [Not Recovered/Not Resolved]
  - Motor dysfunction [Not Recovered/Not Resolved]
  - Ill-defined disorder [Recovered/Resolved]
  - Abasia [Recovered/Resolved]
  - Dysstasia [Recovered/Resolved]
  - Neurogenic bladder [Not Recovered/Not Resolved]
  - Balance disorder [Recovered/Resolved]
  - General symptom [Unknown]
  - Fall [Recovered/Resolved]
  - Contusion [Not Recovered/Not Resolved]
  - Loss of consciousness [Recovered/Resolved]
  - Insomnia [Recovered/Resolved]
  - Cognitive disorder [Not Recovered/Not Resolved]
  - Drug dose omission [Recovered/Resolved]
  - Hypotension [Recovered/Resolved]
  - Fatigue [Unknown]
  - Multiple sclerosis [Not Recovered/Not Resolved]
